FAERS Safety Report 5650354-3 (Version None)
Quarter: 2008Q1

REPORT INFORMATION
  Report Type: 
  Country: None (occurrence: None)
  Receive Date: 20080304
  Receipt Date: 20080304
  Transmission Date: 20080703
  Serious: No
  Sender: FDA-Public Use
  Company Number: None

PATIENT
  Sex: Female
  Weight: 62.8232 kg

DRUGS (1)
  1. DEXADRENE SPANSULES 10MG ONCE BID [Suspect]
     Dosage: 10MG ONCE BID

REACTIONS (2)
  - DRUG INEFFECTIVE [None]
  - NO THERAPEUTIC RESPONSE [None]
